FAERS Safety Report 20171592 (Version 2)
Quarter: 2022Q1

REPORT INFORMATION
  Report Type: Report from Study
  Country: PA (occurrence: PA)
  Receive Date: 20211210
  Receipt Date: 20220121
  Transmission Date: 20220424
  Serious: Yes (Other)
  Sender: FDA-Public Use
  Company Number: PA-NOVARTISPH-NVSC2021PA278542

PATIENT
  Sex: Male
  Weight: 89 kg

DRUGS (2)
  1. CARVEDILOL [Suspect]
     Active Substance: CARVEDILOL
     Indication: Cardiovascular event prophylaxis
     Dosage: 25 MG, QD (STARTED APPROXIMATELY 8 YEARS AGO)
     Route: 065
  2. METFORMIN [Concomitant]
     Active Substance: METFORMIN HYDROCHLORIDE
     Indication: Product used for unknown indication
     Dosage: 850 MG, QD (IN THE MORNING, STARTED APPROXIMATELY 8 YEARS AGO))
     Route: 065

REACTIONS (2)
  - Diabetes mellitus [Recovering/Resolving]
  - Blood cholesterol increased [Unknown]
